FAERS Safety Report 20796512 (Version 3)
Quarter: 2025Q1

REPORT INFORMATION
  Report Type: Spontaneous
  Country: US (occurrence: US)
  Receive Date: 20220506
  Receipt Date: 20250116
  Transmission Date: 20250409
  Serious: Yes (Death, Hospitalization, Other)
  Sender: BRISTOL-MYERS SQUIBB COMPANY
  Company Number: US-BRISTOL-MYERS SQUIBB COMPANY-2022-030724

PATIENT
  Age: 87 Year
  Sex: Female

DRUGS (1)
  1. APIXABAN [Suspect]
     Active Substance: APIXABAN
     Indication: Product used for unknown indication
     Dosage: DOSE : ONE TABLET;     FREQ : TWICE DAILY
     Route: 048

REACTIONS (6)
  - Acute respiratory failure [Fatal]
  - Acute kidney injury [Recovered/Resolved]
  - Mesothelioma [Unknown]
  - Melaena [Unknown]
  - Pneumonia [Unknown]
  - Sepsis [Unknown]
